FAERS Safety Report 6436318-0 (Version None)
Quarter: 2009Q4

REPORT INFORMATION
  Report Type: 
  Country: None (occurrence: None)
  Receive Date: 20091111
  Receipt Date: 20091104
  Transmission Date: 20100525
  Serious: Yes (Disabling)
  Sender: FDA-Public Use
  Company Number: B0602522A

PATIENT
  Sex: Female

DRUGS (4)
  1. RELENZA [Suspect]
     Indication: INFLUENZA
     Dosage: 10MG TWICE PER DAY
     Route: 055
     Dates: start: 20091028, end: 20091031
  2. PASETOCIN [Concomitant]
     Route: 048
     Dates: start: 20091028, end: 20091031
  3. PELEX [Concomitant]
     Dosage: 1G THREE TIMES PER DAY
     Route: 048
  4. HUSCODE [Concomitant]
     Dosage: 2.7ML THREE TIMES PER DAY
     Route: 048

REACTIONS (2)
  - DYSPHAGIA [None]
  - ORAL MUCOSA EROSION [None]
